FAERS Safety Report 6256097-X (Version None)
Quarter: 2009Q2

REPORT INFORMATION
  Report Type: 
  Country: None (occurrence: None)
  Receive Date: 20090630
  Receipt Date: 20090630
  Transmission Date: 20091009
  Serious: Yes (Hospitalization)
  Sender: FDA-Public Use
  Company Number: None

PATIENT
  Age: 74 Year
  Sex: Male
  Weight: 72.5755 kg

DRUGS (4)
  1. VASOTEC [Suspect]
     Indication: BLOOD PRESSURE
     Dosage: 5 MG ONCE/DAY PO
     Route: 048
     Dates: start: 20090501, end: 20090605
  2. NORVASC [Concomitant]
  3. PEPCID INSULIN [Concomitant]
  4. GLUCOVANCE [Concomitant]

REACTIONS (2)
  - BLOOD POTASSIUM INCREASED [None]
  - PANCREATITIS [None]
